FAERS Safety Report 13500314 (Version 2)
Quarter: 2017Q2

REPORT INFORMATION
  Report Type: Spontaneous
  Country: US (occurrence: US)
  Receive Date: 20170501
  Receipt Date: 20170511
  Transmission Date: 20170830
  Serious: Yes (Life-Threatening, Other)
  Sender: FDA-Public Use
  Company Number: US-NOVOPROD-542157

PATIENT
  Age: 13 Year
  Sex: Female
  Weight: 38 kg

DRUGS (5)
  1. DEGLUDEC [Concomitant]
     Indication: TYPE 1 DIABETES MELLITUS
     Dosage: 7.0 MG, QD
     Dates: start: 20170227
  2. NOVOLOG [Suspect]
     Active Substance: INSULIN ASPART
     Dosage: 15.0 U, QD
     Dates: start: 20170227
  3. LANTUS [Concomitant]
     Active Substance: INSULIN GLARGINE
     Indication: TYPE 1 DIABETES MELLITUS
     Dosage: 5.0 U, QD
     Dates: start: 20150414, end: 20160603
  4. STRATTERA [Concomitant]
     Active Substance: ATOMOXETINE HYDROCHLORIDE
     Indication: ATTENTION DEFICIT/HYPERACTIVITY DISORDER
     Dosage: UNK
     Dates: end: 20170320
  5. NOVOLOG [Suspect]
     Active Substance: INSULIN ASPART
     Indication: TYPE 1 DIABETES MELLITUS
     Dosage: 18.0 U, QD
     Dates: start: 20150415, end: 20160603

REACTIONS (3)
  - Disruptive mood dysregulation disorder [Not Recovered/Not Resolved]
  - Intentional overdose [Recovered/Resolved]
  - Blood glucose decreased [Recovered/Resolved]

NARRATIVE: CASE EVENT DATE: 20170329
